FAERS Safety Report 9091737 (Version 2)
Quarter: 2013Q3

REPORT INFORMATION
  Report Type: Spontaneous
  Country: DK (occurrence: FR)
  Receive Date: 20130131
  Receipt Date: 20130821
  Transmission Date: 20140515
  Serious: Yes (Hospitalization)
  Sender: FDA-Public Use
  Company Number: FR-FRI-1000041624

PATIENT
  Age: 17 Year
  Sex: Male

DRUGS (8)
  1. ESCITALOPRAM [Suspect]
     Indication: PSYCHOTIC DISORDER
     Dosage: 10 MG
     Route: 048
     Dates: start: 20120911, end: 20120923
  2. ESCITALOPRAM [Suspect]
     Indication: PSYCHOTIC DISORDER
     Dosage: 15 MG
     Route: 048
     Dates: start: 20120924, end: 20121015
  3. RISPERDAL [Suspect]
     Indication: PSYCHOTIC DISORDER
     Dosage: 4 MG
     Route: 048
     Dates: start: 20120907, end: 20120907
  4. RISPERDAL [Suspect]
     Dosage: 6 MG
     Route: 048
     Dates: start: 20120908, end: 20120909
  5. RISPERDAL [Suspect]
     Indication: PSYCHOTIC DISORDER
     Dosage: 8 MG
     Route: 048
     Dates: start: 20120910, end: 20120913
  6. RISPERDAL [Suspect]
     Indication: PSYCHOTIC DISORDER
     Dosage: 6 MG
     Route: 048
     Dates: start: 20120914, end: 20121002
  7. TERCIAN [Suspect]
     Indication: PSYCHOTIC DISORDER
     Route: 048
  8. SOLIAN [Suspect]
     Dosage: 400 MG
     Route: 048
     Dates: start: 20121008, end: 20121009

REACTIONS (3)
  - Hepatitis cholestatic [Recovered/Resolved]
  - Hepatitis [Recovered/Resolved]
  - Off label use [Recovered/Resolved]
